FAERS Safety Report 5074657-9 (Version None)
Quarter: 2006Q3

REPORT INFORMATION
  Report Type: 
  Country: None (occurrence: None)
  Receive Date: 20060803
  Receipt Date: 20060725
  Transmission Date: 20061208
  Serious: Yes (Other)
  Sender: FDA-Public Use
  Company Number: 2004000819

PATIENT
  Sex: Female

DRUGS (1)
  1. NARDIL [Suspect]
     Indication: ILL-DEFINED DISORDER
     Dosage: DAILY, ORAL
     Route: 048

REACTIONS (9)
  - ANXIETY [None]
  - DEPERSONALISATION [None]
  - DEPRESSION [None]
  - DRUG INEFFECTIVE [None]
  - DRUG WITHDRAWAL SYNDROME [None]
  - FEELING ABNORMAL [None]
  - INSOMNIA [None]
  - NONSPECIFIC REACTION [None]
  - THERAPEUTIC PRODUCT INEFFECTIVE [None]
